FAERS Safety Report 8272641-5 (Version None)
Quarter: 2012Q2

REPORT INFORMATION
  Report Type: 
  Country: None (occurrence: None)
  Receive Date: 20120410
  Receipt Date: 20120330
  Transmission Date: 20120825
  Serious: Yes (Hospitalization)
  Sender: FDA-Public Use
  Company Number: US-ELI_LILLY_AND_COMPANY-US201204000812

PATIENT
  Sex: Female

DRUGS (1)
  1. HUMATROPE [Suspect]
     Indication: DWARFISM
     Dosage: 0.9 MG, QD

REACTIONS (2)
  - INFECTIOUS MONONUCLEOSIS [None]
  - PHARYNGITIS STREPTOCOCCAL [None]
